FAERS Safety Report 5592671-1 (Version None)
Quarter: 2008Q1

REPORT INFORMATION
  Report Type: 
  Country: None (occurrence: None)
  Receive Date: 20080114
  Receipt Date: 20080103
  Transmission Date: 20080703
  Serious: Yes (Other)
  Sender: FDA-Public Use
  Company Number: US-WYE-H01981308

PATIENT
  Age: 44 Year
  Sex: Female

DRUGS (2)
  1. CENTRUM [Suspect]
     Indication: NUTRITIONAL SUPPORT
     Dosage: 1 TABLET 1X PER 1 DAY ORAL
     Route: 048
     Dates: start: 20070901, end: 20071201
  2. VITAMIN E [Concomitant]

REACTIONS (1)
  - SUICIDAL IDEATION [None]
